FAERS Safety Report 9044351 (Version 2)
Quarter: 2013Q1

REPORT INFORMATION
  Report Type: Spontaneous
  Country: US (occurrence: US)
  Receive Date: 20130131
  Receipt Date: 20130304
  Transmission Date: 20140127
  Serious: No
  Sender: FDA-Public Use
  Company Number: US-BIOGENIDEC-2013BI007629

PATIENT
  Age: 56 Year
  Sex: Female

DRUGS (1)
  1. TYSABRI [Suspect]
     Indication: MULTIPLE SCLEROSIS
     Route: 042
     Dates: start: 20121112

REACTIONS (5)
  - Pain in extremity [Recovered/Resolved]
  - Sensory disturbance [Unknown]
  - Eye pain [Unknown]
  - Sinus headache [Unknown]
  - Arthralgia [Recovered/Resolved]
